FAERS Safety Report 21766522 (Version 1)
Quarter: 2022Q4

REPORT INFORMATION
  Report Type: Spontaneous
  Country: FR (occurrence: FR)
  Receive Date: 20221222
  Receipt Date: 20221222
  Transmission Date: 20230112
  Serious: Yes (Hospitalization)
  Sender: FDA-Public Use
  Company Number: None

PATIENT
  Age: 57 Year
  Sex: Male
  Weight: 71 kg

DRUGS (2)
  1. KEYTRUDA [Suspect]
     Active Substance: PEMBROLIZUMAB
     Indication: Renal cancer
     Dosage: NO, KNOWN
     Route: 042
     Dates: end: 20220517
  2. INLYTA [Suspect]
     Active Substance: AXITINIB
     Indication: Renal cancer
     Dosage: 5MG*2X/D
     Route: 048
     Dates: start: 20210320, end: 20210523

REACTIONS (2)
  - Colitis [Recovered/Resolved with Sequelae]
  - Hepatic cytolysis [Recovered/Resolved with Sequelae]

NARRATIVE: CASE EVENT DATE: 20210301
